FAERS Safety Report 11634391 (Version 3)
Quarter: 2015Q4

REPORT INFORMATION
  Report Type: Spontaneous
  Country: DE (occurrence: DE)
  Receive Date: 20151015
  Receipt Date: 20151020
  Transmission Date: 20160304
  Serious: Yes (Hospitalization)
  Sender: FDA-Public Use
  Company Number: DE-JNJFOC-20151007542

PATIENT
  Age: 40 Year
  Sex: Female

DRUGS (8)
  1. SIMPONI [Suspect]
     Active Substance: GOLIMUMAB
     Indication: COLITIS ULCERATIVE
     Route: 058
     Dates: start: 20150717
  2. PREDNISOLON [Concomitant]
     Active Substance: PREDNISOLONE
     Route: 065
  3. SIMPONI [Suspect]
     Active Substance: GOLIMUMAB
     Indication: COLITIS ULCERATIVE
     Route: 058
     Dates: start: 201506
  4. SIMPONI [Suspect]
     Active Substance: GOLIMUMAB
     Indication: COLITIS ULCERATIVE
     Route: 058
     Dates: start: 20150617
  5. SALOFALK [Concomitant]
     Active Substance: MESALAMINE
     Route: 065
  6. TRIMIPRAMINE [Concomitant]
     Active Substance: TRIMIPRAMINE
     Dosage: DOSAGE: 50 DROPS
     Route: 065
  7. PANTOPRAZOL [Concomitant]
     Active Substance: PANTOPRAZOLE SODIUM
     Route: 065
  8. SIMPONI [Suspect]
     Active Substance: GOLIMUMAB
     Indication: COLITIS ULCERATIVE
     Route: 058
     Dates: start: 20150517

REACTIONS (11)
  - Sinusitis [Unknown]
  - Depression [Unknown]
  - Anxiety [Unknown]
  - Anaphylactic reaction [Not Recovered/Not Resolved]
  - Neuralgia [Not Recovered/Not Resolved]
  - Haematoma [Not Recovered/Not Resolved]
  - Purulence [Unknown]
  - Platelet count decreased [Recovered/Resolved]
  - Oral candidiasis [Not Recovered/Not Resolved]
  - Headache [Unknown]
  - Local swelling [Unknown]

NARRATIVE: CASE EVENT DATE: 2015
